FAERS Safety Report 9246676 (Version 2)
Quarter: 2013Q2

REPORT INFORMATION
  Report Type: Spontaneous
  Country: US (occurrence: US)
  Receive Date: 20130422
  Receipt Date: 20130612
  Transmission Date: 20140414
  Serious: Yes (Death)
  Sender: FDA-Public Use
  Company Number: US-ELI_LILLY_AND_COMPANY-US201304005421

PATIENT
  Sex: Male
  Weight: 55.06 kg

DRUGS (5)
  1. ALIMTA [Suspect]
     Indication: LUNG CANCER METASTATIC
     Dosage: 925 MG, OTHER
     Route: 042
     Dates: start: 20120416, end: 20120529
  2. GEMZAR [Suspect]
     Indication: LUNG NEOPLASM MALIGNANT
     Dosage: UNK, UNKNOWN
     Route: 065
  3. VITAMIN B12 [Concomitant]
     Dosage: 1000 UG, UNKNOWN
     Route: 065
     Dates: start: 20120327, end: 20120328
  4. FOLIC ACID [Concomitant]
     Dosage: 1 MG, QD
     Route: 048
     Dates: start: 20120412, end: 20120530
  5. CORTICOSTEROID NOS [Concomitant]
     Dosage: 4 MG, BID
     Route: 048
     Dates: start: 20120412, end: 20120530

REACTIONS (1)
  - Malignant neoplasm progression [Fatal]
